FAERS Safety Report 6430745-3 (Version None)
Quarter: 2009Q4

REPORT INFORMATION
  Report Type: 
  Country: None (occurrence: None)
  Receive Date: 20091105
  Receipt Date: 20091105
  Transmission Date: 20100525
  Serious: Yes (Other)
  Sender: FDA-Public Use
  Company Number: None

PATIENT
  Sex: Female
  Weight: 81.6475 kg

DRUGS (1)
  1. CHANTIX [Suspect]
     Indication: SMOKING CESSATION THERAPY
     Dosage: ONE TABLET BID PO
     Route: 048
     Dates: start: 20091002, end: 20091019

REACTIONS (8)
  - AGGRESSION [None]
  - DELUSION [None]
  - DEPRESSION [None]
  - EMOTIONAL DISORDER [None]
  - HOMICIDAL IDEATION [None]
  - IRRITABILITY [None]
  - MENTAL DISORDER [None]
  - SUICIDAL IDEATION [None]
